FAERS Safety Report 20706797 (Version 1)
Quarter: 2022Q2

REPORT INFORMATION
  Report Type: Spontaneous
  Country: US (occurrence: None)
  Receive Date: 20220413
  Receipt Date: 20220413
  Transmission Date: 20220721
  Serious: Yes (Death)
  Sender: FDA-Public Use
  Company Number: None

PATIENT
  Sex: Female

DRUGS (5)
  1. GENGRAF [Suspect]
     Active Substance: CYCLOSPORINE
     Indication: Renal transplant
     Dosage: TAKE 2 CAPSULES (50 MG) BY MOUTH TWICE DAILY
     Route: 048
     Dates: start: 20210204, end: 202204
  2. ATORVASTATIN TAB 20MG [Concomitant]
  3. ENALAPRIL TAB 20MG [Concomitant]
  4. METOPROL TAR [Concomitant]
  5. MYCOPHENOLATE MOFETIL [Concomitant]
     Active Substance: MYCOPHENOLATE MOFETIL

REACTIONS (1)
  - Death [None]
